FAERS Safety Report 5727570-5 (Version None)
Quarter: 2008Q2

REPORT INFORMATION
  Report Type: 
  Country: None (occurrence: None)
  Receive Date: 20080505
  Receipt Date: 20080425
  Transmission Date: 20081010
  Serious: Yes (Hospitalization)
  Sender: FDA-Public Use
  Company Number: JP-SANOFI-SYNTHELABO-A01200805004

PATIENT
  Age: 62 Year
  Sex: Female

DRUGS (21)
  1. DEPAS [Concomitant]
     Route: 041
  2. ROPION [Concomitant]
     Route: 041
  3. VOLTAREN [Concomitant]
     Route: 054
  4. ANPEC [Concomitant]
     Route: 041
  5. OMEPRAL [Concomitant]
     Route: 048
  6. MALFA [Concomitant]
     Route: 048
  7. SOLANAX [Concomitant]
     Route: 048
  8. MYSLEE [Concomitant]
     Route: 048
  9. SELBEX [Concomitant]
     Route: 048
  10. KENTAN [Concomitant]
     Route: 048
  11. MAGLAX [Concomitant]
     Route: 048
  12. OPSO [Concomitant]
     Route: 048
  13. OXYCONTIN [Concomitant]
     Route: 048
  14. PRIMPERAN TAB [Concomitant]
     Route: 048
  15. AGENTS RELATED TO BLOOD AND BODY FLUIDS NEC [Concomitant]
     Route: 058
     Dates: start: 20080421, end: 20080421
  16. KYTRIL [Concomitant]
     Route: 041
     Dates: start: 20080404, end: 20080418
  17. DECADRON [Concomitant]
     Route: 041
     Dates: start: 20080404, end: 20080418
  18. ISOVORIN [Suspect]
     Indication: COLORECTAL CANCER
     Route: 041
     Dates: start: 20080418, end: 20080418
  19. SUNITINIB [Suspect]
     Indication: COLORECTAL CANCER
     Route: 048
     Dates: start: 20080406, end: 20080420
  20. ELPLAT [Suspect]
     Indication: COLORECTAL CANCER
     Route: 041
     Dates: start: 20080418, end: 20080418
  21. FLUOROURACIL [Suspect]
     Indication: COLORECTAL CANCER
     Dosage: 300 MG/M2 BOLUS FOLLOWED BY 1800 MG/M2 INFUSION
     Route: 041
     Dates: start: 20080418, end: 20080418

REACTIONS (3)
  - LEUKOPENIA [None]
  - NEUTROPENIA [None]
  - OESOPHAGITIS [None]
